FAERS Safety Report 5490198-9 (Version None)
Quarter: 2007Q4

REPORT INFORMATION
  Report Type: 
  Country: None (occurrence: None)
  Receive Date: 20071017
  Receipt Date: 20071002
  Transmission Date: 20080405
  Serious: Yes (Hospitalization)
  Sender: FDA-Public Use
  Company Number: AMI0004338

PATIENT
  Sex: Male
  Weight: 127.0072 kg

DRUGS (6)
  1. SYPRINE [Suspect]
     Indication: HEPATO-LENTICULAR DEGENERATION
     Dosage: 500MG TID ORAL
     Route: 048
     Dates: start: 19860101, end: 20000101
  2. SYPRINE [Suspect]
     Indication: HEPATO-LENTICULAR DEGENERATION
     Dosage: 500MG TID ORAL
     Route: 048
     Dates: start: 20000101
  3. DARVOCET [Concomitant]
  4. PERCOCET [Concomitant]
  5. KADIAN [Concomitant]
  6. VICODIN [Concomitant]

REACTIONS (3)
  - BACK PAIN [None]
  - FALL [None]
  - SCAR [None]
